FAERS Safety Report 8573343-8 (Version None)
Quarter: 2012Q3

REPORT INFORMATION
  Report Type: 
  Country: None (occurrence: None)
  Receive Date: 20120806
  Receipt Date: 20120727
  Transmission Date: 20120928
  Serious: Yes (Other)
  Sender: FDA-Public Use
  Company Number: JP-VERTEX PHARMACEUTICALS INC.-AE-2012-011355

PATIENT
  Age: 53 Year
  Sex: Male

DRUGS (7)
  1. CLARITIN REDITABS [Concomitant]
     Route: 048
  2. TELAVIC (TELAPREVIR) [Suspect]
     Indication: HEPATITIS C
     Route: 048
     Dates: start: 20120526, end: 20120528
  3. TELAVIC (TELAPREVIR) [Suspect]
     Route: 048
     Dates: start: 20120529
  4. RIBAVIRIN [Concomitant]
     Indication: HEPATITIS C
     Route: 048
     Dates: start: 20120526
  5. PEGINTERFERON ALFA-2B [Concomitant]
     Route: 058
     Dates: start: 20120526
  6. LIVALO [Concomitant]
     Route: 048
  7. EPADEL S [Concomitant]
     Route: 048

REACTIONS (2)
  - ANAEMIA [None]
  - RASH [None]
